FAERS Safety Report 22307126 (Version 3)
Quarter: 2024Q1

REPORT INFORMATION
  Report Type: Report from Study
  Country: CA (occurrence: CA)
  Receive Date: 20230511
  Receipt Date: 20240209
  Transmission Date: 20240410
  Serious: Yes (Other)
  Sender: FDA-Public Use
  Company Number: CA-JNJFOC-20220727856

PATIENT
  Age: 47 Year
  Sex: Female

DRUGS (1)
  1. SIMPONI [Suspect]
     Active Substance: GOLIMUMAB
     Indication: Ankylosing spondylitis
     Route: 058
     Dates: start: 20210623, end: 202303

REACTIONS (17)
  - Hallucination [Unknown]
  - Insomnia [Unknown]
  - Dyspnoea [Unknown]
  - COVID-19 [Recovered/Resolved]
  - Chest discomfort [Recovering/Resolving]
  - Dyspnoea [Unknown]
  - Product dose omission issue [Unknown]
  - Feelings of worthlessness [Unknown]
  - Fatigue [Unknown]
  - Impaired quality of life [Unknown]
  - Infection [Recovering/Resolving]
  - Viral infection [Unknown]
  - Blood iron decreased [Unknown]
  - Cystitis [Unknown]
  - Illness [Unknown]
  - Pain [Unknown]
  - Drug ineffective [Unknown]

NARRATIVE: CASE EVENT DATE: 20220101
